FAERS Safety Report 6275172-7 (Version None)
Quarter: 2009Q3

REPORT INFORMATION
  Report Type: 
  Country: None (occurrence: None)
  Receive Date: 20090721
  Receipt Date: 20090706
  Transmission Date: 20100115
  Serious: No
  Sender: FDA-Public Use
  Company Number: US-ASTRAZENECA-2009UW18682

PATIENT
  Age: 45 Year
  Sex: Male

DRUGS (4)
  1. SEROQUEL [Suspect]
     Route: 048
  2. GLIPIZIDE [Concomitant]
  3. TOPROL-XL [Concomitant]
     Route: 048
  4. IRON [Concomitant]

REACTIONS (2)
  - ANAEMIA [None]
  - LEUKOCYTOSIS [None]
